FAERS Safety Report 24983052 (Version 1)
Quarter: 2025Q1

REPORT INFORMATION
  Report Type: Spontaneous
  Country: BE (occurrence: BE)
  Receive Date: 20250218
  Receipt Date: 20250218
  Transmission Date: 20250408
  Serious: Yes (Other)
  Sender: NOVARTIS
  Company Number: BE-002147023-NVSC2025BE026446

PATIENT
  Sex: Female

DRUGS (1)
  1. BEOVU [Suspect]
     Active Substance: BROLUCIZUMAB-DBLL
     Indication: Serous retinal detachment
     Route: 065
     Dates: start: 20220214

REACTIONS (2)
  - Detachment of retinal pigment epithelium [Unknown]
  - Off label use [Unknown]

NARRATIVE: CASE EVENT DATE: 20240101
